FAERS Safety Report 14354385 (Version 1)
Quarter: 2018Q1

REPORT INFORMATION
  Report Type: Report from Study
  Country: US (occurrence: US)
  Receive Date: 20180105
  Receipt Date: 20180105
  Transmission Date: 20180509
  Serious: Yes (Other)
  Sender: FDA-Public Use
  Company Number: US-BAYER-2017-200672

PATIENT
  Age: 70 Year
  Sex: Female
  Weight: 81.27 kg

DRUGS (6)
  1. OXYGEN. [Concomitant]
     Active Substance: OXYGEN
  2. ADEMPAS [Suspect]
     Active Substance: RIOCIGUAT
     Indication: PULMONARY HYPERTENSION
     Dosage: 1.0 MG, TID
     Route: 048
  3. APIXABAN [Concomitant]
     Active Substance: APIXABAN
     Dosage: UNK
  4. ADEMPAS [Suspect]
     Active Substance: RIOCIGUAT
     Indication: PULMONARY HYPERTENSION
     Dosage: 1.0 MG, TID
     Route: 048
  5. ADEMPAS [Suspect]
     Active Substance: RIOCIGUAT
     Indication: PULMONARY HYPERTENSION
     Dosage: UNK
     Dates: start: 20161011
  6. ADEMPAS [Suspect]
     Active Substance: RIOCIGUAT
     Indication: PULMONARY HYPERTENSION
     Dosage: UNK

REACTIONS (27)
  - Dyspnoea [None]
  - Blood pressure increased [Unknown]
  - Abdominal pain [Unknown]
  - Malaise [None]
  - Gastrooesophageal reflux disease [Unknown]
  - Vomiting [Not Recovered/Not Resolved]
  - Drug hypersensitivity [None]
  - Musculoskeletal chest pain [None]
  - Hospitalisation [Unknown]
  - Malaise [Unknown]
  - Chest pain [Unknown]
  - Headache [Unknown]
  - Oedema [Unknown]
  - Fatigue [Unknown]
  - Pulmonary arterial pressure increased [Unknown]
  - Dry eye [None]
  - Weight increased [Unknown]
  - Ageusia [Unknown]
  - Abdominal pain upper [Unknown]
  - Pneumonia [Not Recovered/Not Resolved]
  - Blood pressure decreased [Unknown]
  - Decreased appetite [Unknown]
  - Back pain [Unknown]
  - Angina pectoris [None]
  - Nausea [Not Recovered/Not Resolved]
  - Nasal dryness [None]
  - Hypotension [Unknown]

NARRATIVE: CASE EVENT DATE: 201709
